FAERS Safety Report 10301498 (Version 1)
Quarter: 2014Q3

REPORT INFORMATION
  Report Type: Report from Study
  Country: DE (occurrence: DE)
  Receive Date: 20140714
  Receipt Date: 20140714
  Transmission Date: 20150326
  Serious: Yes (Hospitalization)
  Sender: FDA-Public Use
  Company Number: PHHY2014DE085927

PATIENT
  Sex: Female
  Weight: 63 kg

DRUGS (9)
  1. SIMVASTATIN ACCORD [Concomitant]
  2. NEBIVOLOL AL [Concomitant]
  3. PANTOZOL [Concomitant]
     Active Substance: PANTOPRAZOLE SODIUM
     Dosage: 20 MG, UNK
  4. TORASEMID AL [Concomitant]
  5. ULTIBRO BREEZHALER [Suspect]
     Active Substance: GLYCOPYRRONIUM\INDACATEROL
     Indication: CHRONIC OBSTRUCTIVE PULMONARY DISEASE
     Dosage: 1 DF, QD
     Route: 055
     Dates: start: 20140213
  6. ALDACTONE [Concomitant]
     Active Substance: SPIRONOLACTONE
  7. ALLOPURINOL ALMUS [Concomitant]
  8. AMLODIPIN ALPHARMA [Concomitant]
  9. SALBUTAMOL STADA [Concomitant]
     Route: 055
     Dates: start: 201102

REACTIONS (1)
  - Femoral neck fracture [Unknown]

NARRATIVE: CASE EVENT DATE: 20140510
